FAERS Safety Report 11156430 (Version 2)
Quarter: 2015Q2

REPORT INFORMATION
  Report Type: Report from Study
  Country: DE (occurrence: DE)
  Receive Date: 20150602
  Receipt Date: 20150625
  Transmission Date: 20150821
  Serious: Yes (Death)
  Sender: FDA-Public Use
  Company Number: DE-ABBVIE-15P-062-1401028-00

PATIENT
  Sex: Female

DRUGS (1)
  1. DUODOPA [Suspect]
     Active Substance: CARBIDOPA\LEVODOPA
     Indication: PARKINSON^S DISEASE
     Dosage: MD 0, CRD 1.0ML/H, ED 1.5ML
     Route: 050
     Dates: start: 20100909

REACTIONS (3)
  - Condition aggravated [Fatal]
  - Adverse event [Fatal]
  - Femoral neck fracture [Fatal]
